FAERS Safety Report 11814067 (Version 1)
Quarter: 2015Q4

REPORT INFORMATION
  Report Type: Spontaneous
  Country: FR (occurrence: FR)
  Receive Date: 20151209
  Receipt Date: 20151209
  Transmission Date: 20160305
  Serious: Yes (Hospitalization)
  Sender: FDA-Public Use
  Company Number: ALCN2015FR007465

PATIENT
  Age: 30 Year
  Sex: Male

DRUGS (4)
  1. IXPRIM [Suspect]
     Active Substance: ACETAMINOPHEN\TRAMADOL HYDROCHLORIDE
     Indication: PAIN
     Dosage: UNK
     Route: 048
     Dates: start: 20150904, end: 20150909
  2. PYOSTACINE [Suspect]
     Active Substance: PRISTINAMYCIN
     Indication: EAR INFECTION
     Dosage: 1 DF, BID
     Route: 048
     Dates: start: 20150904, end: 20150909
  3. CILOXADEX [Suspect]
     Active Substance: CIPROFLOXACIN HYDROCHLORIDE\DEXAMETHASONE
     Indication: EAR INFECTION
     Dosage: 1 DF, TID
     Route: 001
     Dates: start: 20150904, end: 20150909
  4. SURGAM [Suspect]
     Active Substance: TIAPROFENIC ACID
     Indication: EAR INFECTION
     Dosage: 1 DF, TID
     Route: 048
     Dates: start: 20150904, end: 20150909

REACTIONS (1)
  - Acute kidney injury [Unknown]
